FAERS Safety Report 4894381-2 (Version None)
Quarter: 2006Q1

REPORT INFORMATION
  Report Type: 
  Country: None (occurrence: None)
  Receive Date: 20060127
  Receipt Date: 20060117
  Transmission Date: 20060701
  Serious: Yes (Hospitalization)
  Sender: FDA-Public Use
  Company Number: 2006AP00322

PATIENT
  Age: 6528 Day
  Sex: Male

DRUGS (6)
  1. SEROQUEL [Suspect]
     Indication: SCHIZOPHRENIA
     Route: 048
     Dates: start: 20050729, end: 20050808
  2. ATIVAN [Concomitant]
     Indication: ANXIETY DISORDER
     Route: 048
     Dates: start: 20050721
  3. ATIVAN [Concomitant]
     Route: 048
     Dates: start: 20050731, end: 20050803
  4. AROPAX [Concomitant]
     Indication: DEPRESSION
     Route: 048
  5. ZYPREXA [Concomitant]
     Indication: SCHIZOPHRENIA
     Route: 048
     Dates: start: 20050722, end: 20050725
  6. PAXAM [Concomitant]
     Indication: ANXIETY DISORDER
     Route: 048
     Dates: start: 20050803

REACTIONS (4)
  - BLOOD CREATINE PHOSPHOKINASE INCREASED [None]
  - HEADACHE [None]
  - HYPERTENSION [None]
  - TACHYCARDIA [None]
